FAERS Safety Report 25895113 (Version 2)
Quarter: 2025Q4

REPORT INFORMATION
  Report Type: Spontaneous
  Country: EU (occurrence: EU)
  Receive Date: 20251008
  Receipt Date: 20251203
  Transmission Date: 20260118
  Serious: Yes (Life-Threatening, Hospitalization)
  Sender: MACLEODS
  Company Number: EU-MLMSERVICE-20250924-PI657900-00217-1

PATIENT

DRUGS (7)
  1. METFORMIN [Suspect]
     Active Substance: METFORMIN HYDROCHLORIDE
     Indication: Diabetes mellitus
     Dosage: 1,000 MG 3 X PER DAY, DOSE AT HOME
     Route: 065
  2. HYDROCHLOROTHIAZIDE [Suspect]
     Active Substance: HYDROCHLOROTHIAZIDE
     Indication: Polyuria
     Dosage: 12.5 MG 1 X PER DAY, DOSE AT HOME
     Route: 065
  3. OZEMPIC [Suspect]
     Active Substance: SEMAGLUTIDE
     Indication: Diabetes mellitus
     Dosage: DOSE AT HOME, 0.5 MG 1 X WEEK
     Route: 065
  4. GLICLAZIDE [Concomitant]
     Active Substance: GLICLAZIDE
     Indication: Diabetes mellitus
     Dosage: 60 MG 1 X PER DAY, DOSE AT HOME. DURING CLINICAL ADMISSION AND DOSE AT DISCHARGE
     Route: 065
  5. ENALAPRIL [Concomitant]
     Active Substance: ENALAPRIL
     Indication: Product used for unknown indication
     Dosage: 10 MG 1 X PER DAY, DOSE AT HOME
     Route: 065
  6. PANTOPRAZOLE [Concomitant]
     Active Substance: PANTOPRAZOLE
     Dosage: 2 MONTHS
     Route: 065
  7. SIMVASTATIN [Concomitant]
     Active Substance: SIMVASTATIN
     Indication: Product used for unknown indication
     Dosage: 40 MG 1 X PER DAY, DOSE AT HOME, DOSE DURING CLINICAL ADMISSION, DOSE AT DISCHARGE
     Route: 065

REACTIONS (5)
  - Toxicity to various agents [Recovering/Resolving]
  - Acute kidney injury [Not Recovered/Not Resolved]
  - Metabolic acidosis [Recovering/Resolving]
  - Lactic acidosis [Recovered/Resolved]
  - Overdose [Recovered/Resolved]
